FAERS Safety Report 7771956-4 (Version None)
Quarter: 2011Q3

REPORT INFORMATION
  Report Type: 
  Country: None (occurrence: None)
  Receive Date: 20110922
  Receipt Date: 20100803
  Transmission Date: 20111222
  Serious: No
  Sender: FDA-Public Use
  Company Number: US-ASTRAZENECA-2007UW21660

PATIENT
  Age: 35 Year
  Sex: Female
  Weight: 104.3 kg

DRUGS (26)
  1. KEFLEX [Concomitant]
     Route: 048
  2. TRIAVIL [Concomitant]
  3. SEROQUEL [Suspect]
     Route: 048
     Dates: start: 20040609
  4. SEROQUEL [Suspect]
     Route: 048
     Dates: start: 20030101, end: 20070101
  5. TRILAFON [Concomitant]
  6. SEROQUEL [Suspect]
     Route: 048
     Dates: start: 20040609
  7. XANAX [Concomitant]
     Route: 048
  8. SEROQUEL [Suspect]
     Route: 048
     Dates: start: 20020101
  9. VICODINE [Concomitant]
     Route: 048
  10. DEXATRIM [Concomitant]
     Indication: WEIGHT CONTROL
  11. SEROQUEL [Suspect]
     Indication: DEPRESSION
     Dosage: 50 MG TO 100 MG
     Route: 048
     Dates: start: 20040101, end: 20060601
  12. SEROQUEL [Suspect]
     Route: 048
     Dates: start: 20030101, end: 20070101
  13. TRAZODONE HYDROCHLORIDE [Concomitant]
  14. SEROQUEL [Suspect]
     Indication: SCHIZOPHRENIA
     Dosage: 50 MG TO 100 MG
     Route: 048
     Dates: start: 20040101, end: 20060601
  15. SEROQUEL [Suspect]
     Route: 048
     Dates: start: 20040609
  16. SEROQUEL [Suspect]
     Route: 048
     Dates: start: 20040609
  17. SEROQUEL [Suspect]
     Route: 048
     Dates: start: 20030101, end: 20070101
  18. SEROQUEL [Suspect]
     Route: 048
     Dates: start: 20020101
  19. SEROQUEL [Suspect]
     Route: 048
     Dates: start: 20020101
  20. INDERAL [Concomitant]
     Route: 048
  21. ABILIFY [Concomitant]
  22. SEROQUEL [Suspect]
     Indication: ANXIETY
     Dosage: 50 MG TO 100 MG
     Route: 048
     Dates: start: 20040101, end: 20060601
  23. SEROQUEL [Suspect]
     Indication: BIPOLAR DISORDER
     Dosage: 50 MG TO 100 MG
     Route: 048
     Dates: start: 20040101, end: 20060601
  24. SEROQUEL [Suspect]
     Route: 048
     Dates: start: 20030101, end: 20070101
  25. SEROQUEL [Suspect]
     Route: 048
     Dates: start: 20020101
  26. LEXAPRO [Concomitant]
     Route: 048

REACTIONS (8)
  - TYPE 2 DIABETES MELLITUS [None]
  - OBESITY [None]
  - BLOOD TRIGLYCERIDES INCREASED [None]
  - BLOOD CHOLESTEROL INCREASED [None]
  - DIABETES MELLITUS [None]
  - WEIGHT INCREASED [None]
  - DIABETIC COMPLICATION [None]
  - HYPERLIPIDAEMIA [None]
